FAERS Safety Report 11760059 (Version 1)
Quarter: 2015Q4

REPORT INFORMATION
  Report Type: Spontaneous
  Country: US (occurrence: US)
  Receive Date: 20151120
  Receipt Date: 20151120
  Transmission Date: 20160304
  Serious: No
  Sender: FDA-Public Use
  Company Number: US-ELI_LILLY_AND_COMPANY-US201210009925

PATIENT
  Age: 63 Year
  Sex: Male

DRUGS (1)
  1. FORTEO [Suspect]
     Active Substance: TERIPARATIDE
     Indication: OSTEOPOROSIS
     Dosage: 20 UG, QD
     Dates: start: 20121001

REACTIONS (9)
  - Abdominal pain upper [Unknown]
  - Myalgia [Unknown]
  - Feeling abnormal [Unknown]
  - Paraesthesia [Unknown]
  - Mobility decreased [Unknown]
  - Muscle spasms [Unknown]
  - Pain [Unknown]
  - Eye pain [Unknown]
  - Tinnitus [Unknown]

NARRATIVE: CASE EVENT DATE: 20121028
